FAERS Safety Report 8919976 (Version 3)
Quarter: 2013Q1

REPORT INFORMATION
  Report Type: Report from Study
  Country: US (occurrence: US)
  Receive Date: 20121121
  Receipt Date: 20130222
  Transmission Date: 20140127
  Serious: Yes (Hospitalization)
  Sender: FDA-Public Use
  Company Number: US-ACTELION-A-US2012-74628

PATIENT
  Age: 80 Year
  Sex: Male

DRUGS (2)
  1. TRACLEER [Suspect]
     Indication: PULMONARY ARTERIAL HYPERTENSION
     Dosage: UNK
     Route: 048
     Dates: start: 20110630
  2. PLAVIX [Concomitant]

REACTIONS (4)
  - Gallbladder disorder [Unknown]
  - Gallbladder operation [Unknown]
  - Dyspnoea [Unknown]
  - Fatigue [Unknown]
